FAERS Safety Report 6016314-8 (Version None)
Quarter: 2008Q4

REPORT INFORMATION
  Report Type: 
  Country: None (occurrence: None)
  Receive Date: 20081222
  Receipt Date: 20081218
  Transmission Date: 20090506
  Serious: Yes (Death)
  Sender: FDA-Public Use
  Company Number: US-JNJFOC-20081205284

PATIENT
  Sex: Male

DRUGS (1)
  1. CISAPRIDE [Suspect]
     Indication: ILEUS
     Route: 048

REACTIONS (1)
  - METASTATIC CARCINOMA OF THE BLADDER [None]
